APPROVED DRUG PRODUCT: GUAIFENESIN
Active Ingredient: GUAIFENESIN
Strength: 1.2GM
Dosage Form/Route: TABLET, EXTENDED RELEASE;ORAL
Application: A207342 | Product #002
Applicant: AMNEAL PHARMACEUTICALS OF NEW YORK LLC
Approved: Jul 11, 2018 | RLD: No | RS: No | Type: OTC